FAERS Safety Report 7357421-7 (Version None)
Quarter: 2011Q1

REPORT INFORMATION
  Report Type: 
  Country: None (occurrence: None)
  Receive Date: 20110317
  Receipt Date: 20100903
  Transmission Date: 20110831
  Serious: Yes (Hospitalization, Other)
  Sender: FDA-Public Use
  Company Number: US-BAYER-201024923NA

PATIENT
  Sex: Female
  Weight: 61.224 kg

DRUGS (2)
  1. YAZ [Suspect]
     Indication: CONTRACEPTION
     Route: 048
     Dates: start: 20071101, end: 20080609
  2. IBUPROFEN [Concomitant]
     Dosage: 500 MG, UNK
     Dates: start: 20080401

REACTIONS (4)
  - PULMONARY EMBOLISM [None]
  - PLEURITIC PAIN [None]
  - PULMONARY INFARCTION [None]
  - DYSPNOEA [None]
